FAERS Safety Report 11258366 (Version 2)
Quarter: 2015Q3

REPORT INFORMATION
  Report Type: Report from Study
  Country: BR (occurrence: BR)
  Receive Date: 20150710
  Receipt Date: 20150717
  Transmission Date: 20151125
  Serious: Yes (Life-Threatening, Other)
  Sender: FDA-Public Use
  Company Number: BR-VIIV HEALTHCARE LIMITED-B0581303A

PATIENT
  Age: 31 Year
  Sex: Female
  Weight: 58 kg

DRUGS (4)
  1. LAMIVUDINE AND ZIDOVUDINE [Suspect]
     Active Substance: LAMIVUDINE\ZIDOVUDINE
     Indication: PROPHYLAXIS AGAINST HIV INFECTION
     Route: 048
     Dates: start: 20080416
  2. MEDROXYPROGESTERONE [Concomitant]
     Active Substance: MEDROXYPROGESTERONE
     Dates: start: 20080416
  3. EFAVIRENZ [Suspect]
     Active Substance: EFAVIRENZ
     Indication: PROPHYLAXIS AGAINST HIV INFECTION
     Route: 048
     Dates: start: 20080416, end: 20090701
  4. ATAZANAVIR [Concomitant]
     Active Substance: ATAZANAVIR
     Indication: PROPHYLAXIS AGAINST HIV INFECTION

REACTIONS (9)
  - Suicidal ideation [Unknown]
  - Terminal insomnia [Unknown]
  - Depressed mood [Unknown]
  - Decreased appetite [Unknown]
  - Violence-related symptom [Recovered/Resolved]
  - Depression [Unknown]
  - Homicidal ideation [Unknown]
  - Fatigue [Unknown]
  - Loss of libido [Unknown]

NARRATIVE: CASE EVENT DATE: 20090428
